FAERS Safety Report 11424455 (Version 1)
Quarter: 2015Q3

REPORT INFORMATION
  Report Type: Spontaneous
  Country: US (occurrence: US)
  Receive Date: 20150827
  Receipt Date: 20150827
  Transmission Date: 20151125
  Serious: No
  Sender: FDA-Public Use
  Company Number: US-SA-2015SA009962

PATIENT
  Age: 61 Year
  Sex: Male

DRUGS (3)
  1. MULTAQ [Suspect]
     Active Substance: DRONEDARONE
     Indication: CARDIAC FLUTTER
     Dates: start: 20141124, end: 20150106
  2. MULTAQ [Suspect]
     Active Substance: DRONEDARONE
     Indication: CARDIAC FLUTTER
     Dates: start: 20141124, end: 20150106
  3. MULTAQ [Suspect]
     Active Substance: DRONEDARONE
     Indication: CARDIAC FLUTTER
     Dates: start: 20150107, end: 20150110

REACTIONS (4)
  - Pain in extremity [Not Recovered/Not Resolved]
  - Muscular weakness [Not Recovered/Not Resolved]
  - Activities of daily living impaired [Not Recovered/Not Resolved]
  - Arthralgia [Not Recovered/Not Resolved]

NARRATIVE: CASE EVENT DATE: 2014
